FAERS Safety Report 5451959-5 (Version None)
Quarter: 2007Q3

REPORT INFORMATION
  Report Type: 
  Country: None (occurrence: None)
  Receive Date: 20070912
  Receipt Date: 20070830
  Transmission Date: 20080115
  Serious: Yes (Death, Hospitalization)
  Sender: FDA-Public Use
  Company Number: TAP2007Q00993

PATIENT
  Age: 75 Year
  Sex: Male

DRUGS (4)
  1. LUPRON DEPOT-4 [Suspect]
     Indication: PROSTATE CANCER
     Dosage: 30 MG, 1 IN 4 M, INTRAMUSCULAR
     Route: 030
     Dates: start: 20060512, end: 20070510
  2. ATIVAN [Concomitant]
  3. NOVAMILOR (MODURETIC) [Concomitant]
  4. ASAPHEN (ACETYLSALICYLIC ACID) [Concomitant]

REACTIONS (12)
  - ACTIVITIES OF DAILY LIVING IMPAIRED [None]
  - ASTHENIA [None]
  - CEREBROVASCULAR ACCIDENT [None]
  - DEHYDRATION [None]
  - DIARRHOEA [None]
  - FALL [None]
  - GAIT DISTURBANCE [None]
  - GASTROINTESTINAL INFECTION [None]
  - LIMB INJURY [None]
  - NECK INJURY [None]
  - RENAL FAILURE [None]
  - SALMONELLOSIS [None]
